FAERS Safety Report 4355882-9 (Version None)
Quarter: 2004Q2

REPORT INFORMATION
  Report Type: 
  Country: None (occurrence: None)
  Receive Date: 20040507
  Receipt Date: 20040507
  Transmission Date: 20050107
  Serious: Yes (Hospitalization)
  Sender: FDA-Public Use
  Company Number: None

PATIENT
  Age: 21 Year
  Sex: Male

DRUGS (1)
  1. VANCOMYCIN [Suspect]
     Indication: PREOPERATIVE CARE
     Dosage: 1 GM BID IV
     Route: 042
     Dates: start: 20040421, end: 20040421

REACTIONS (2)
  - RED MAN SYNDROME [None]
  - SKIN DESQUAMATION [None]
